FAERS Safety Report 9054045 (Version 2)
Quarter: 2013Q1

REPORT INFORMATION
  Report Type: Spontaneous
  Country: US (occurrence: US)
  Receive Date: 20130208
  Receipt Date: 20130304
  Transmission Date: 20140127
  Serious: Yes (Hospitalization, Other)
  Sender: FDA-Public Use
  Company Number: US-ASTELLAS-2013US001369

PATIENT
  Age: 56 None
  Sex: Female

DRUGS (2)
  1. PROGRAF [Suspect]
     Indication: LIVER TRANSPLANT
     Dosage: 1 MG, BID
     Route: 048
     Dates: start: 20031025
  2. CELLCEPT                           /01275102/ [Concomitant]
     Indication: PRODUCT USED FOR UNKNOWN INDICATION
     Dosage: 750 MG, BID
     Route: 048

REACTIONS (17)
  - Tonsillectomy [Unknown]
  - Cardiac murmur [Unknown]
  - Hepatic hydrothorax [Unknown]
  - Liver transplant rejection [Unknown]
  - Encephalopathy [Unknown]
  - Haemoglobin decreased [Unknown]
  - Pleural effusion [Unknown]
  - Pulmonary oedema [Unknown]
  - Electrocardiogram QT prolonged [Unknown]
  - Depression [Unknown]
  - Urinary tract infection [Unknown]
  - Sinus tachycardia [Unknown]
  - Ascites [Unknown]
  - Drug ineffective [Unknown]
  - Pulmonary vascular disorder [Unknown]
  - Post procedural haemorrhage [Unknown]
  - Pulmonary hypertension [Unknown]
